FAERS Safety Report 6690198-7 (Version None)
Quarter: 2010Q2

REPORT INFORMATION
  Report Type: 
  Country: None (occurrence: None)
  Receive Date: 20100412
  Receipt Date: 20091215
  Transmission Date: 20101027
  Serious: No
  Sender: FDA-Public Use
  Company Number: 1000010821

PATIENT
  Age: 49 Year
  Sex: Male

DRUGS (3)
  1. BYSTOLIC [Suspect]
     Indication: HYPERTENSION
     Dosage: 5 MG (5 MG, 1 IN 1 D), ORAL
     Route: 048
     Dates: start: 20090601
  2. KLONOPIN [Concomitant]
  3. ASPIRIN (81 MILLIGRAM, TABLETS) [Concomitant]

REACTIONS (4)
  - ABNORMAL DREAMS [None]
  - ANXIETY [None]
  - DEPRESSION [None]
  - INSOMNIA [None]
